FAERS Safety Report 18672336 (Version 1)
Quarter: 2020Q4

REPORT INFORMATION
  Report Type: Spontaneous
  Country: FR (occurrence: FR)
  Receive Date: 20201228
  Receipt Date: 20201228
  Transmission Date: 20210114
  Serious: Yes (Death, Other)
  Sender: FDA-Public Use
  Company Number: FR-BAUSCH-BL-2020-037525

PATIENT
  Age: 92 Year
  Sex: Female
  Weight: 57 kg

DRUGS (2)
  1. DEXAMETHASONE. [Suspect]
     Active Substance: DEXAMETHASONE
     Indication: COVID-19 PNEUMONIA
     Route: 048
     Dates: start: 20201120, end: 20201125
  2. DEXAMETHASONE MYLAN [Suspect]
     Active Substance: DEXAMETHASONE
     Indication: COVID-19 PNEUMONIA
     Route: 042
     Dates: start: 20201126, end: 20201126

REACTIONS (1)
  - Diabetic metabolic decompensation [Unknown]

NARRATIVE: CASE EVENT DATE: 20201120
